FAERS Safety Report 5876425-4 (Version None)
Quarter: 2008Q3

REPORT INFORMATION
  Report Type: 
  Country: None (occurrence: None)
  Receive Date: 20080910
  Receipt Date: 20080901
  Transmission Date: 20090109
  Serious: Yes (Life-Threatening, Hospitalization, Other)
  Sender: FDA-Public Use
  Company Number: FR-BRISTOL-MYERS SQUIBB COMPANY-14207146

PATIENT
  Age: 58 Year
  Sex: Female

DRUGS (16)
  1. ENDOXAN [Suspect]
     Indication: BURKITT'S LYMPHOMA
     Dosage: THERAPY FRM 07JAN07-13JAN07,14JAN07-19JAN07,1FEB-7FEB07,22JUN-23JUN07DOSE-785MG/D .
     Route: 042
     Dates: start: 20070107, end: 20070623
  2. ENDOXAN [Suspect]
     Indication: ACUTE LYMPHOCYTIC LEUKAEMIA
     Dosage: THERAPY FRM 07JAN07-13JAN07,14JAN07-19JAN07,1FEB-7FEB07,22JUN-23JUN07DOSE-785MG/D .
     Route: 042
     Dates: start: 20070107, end: 20070623
  3. DOXORUBICIN HCL [Suspect]
     Indication: BURKITT'S LYMPHOMA
     Dosage: THERAPY FROM 14JAN-19JAN07,01FEB-7FEB07,23JUN-23JUN07(94MG/D)
     Route: 042
     Dates: start: 20070114, end: 20070623
  4. DOXORUBICIN HCL [Suspect]
     Indication: ACUTE LYMPHOCYTIC LEUKAEMIA
     Dosage: THERAPY FROM 14JAN-19JAN07,01FEB-7FEB07,23JUN-23JUN07(94MG/D)
     Route: 042
     Dates: start: 20070114, end: 20070623
  5. ONCOVIN [Suspect]
     Indication: BURKITT'S LYMPHOMA
     Dosage: THERAPY DATE-7JAN-13JAN07,14JAN-19JAN07,1FEB-7FEB07,21JUN-21JUN07(DOSE-2MG EVERY DAY)
     Route: 042
     Dates: start: 20070107, end: 20070621
  6. ONCOVIN [Suspect]
     Indication: ACUTE LYMPHOCYTIC LEUKAEMIA
     Dosage: THERAPY DATE-7JAN-13JAN07,14JAN-19JAN07,1FEB-7FEB07,21JUN-21JUN07(DOSE-2MG EVERY DAY)
     Route: 042
     Dates: start: 20070107, end: 20070621
  7. METHOTREXATE [Suspect]
     Indication: BURKITT'S LYMPHOMA
     Dosage: THERAPY DATE FROM 14JAN07-19JAN07,1FEB-7FEB07,21JUN07-21JUN07(4710MG/D)
     Route: 042
     Dates: start: 20070114, end: 20070621
  8. METHOTREXATE [Suspect]
     Indication: ACUTE LYMPHOCYTIC LEUKAEMIA
     Dosage: THERAPY DATE FROM 14JAN07-19JAN07,1FEB-7FEB07,21JUN07-21JUN07(4710MG/D)
     Route: 042
     Dates: start: 20070114, end: 20070621
  9. PREDNISOLONE [Suspect]
     Indication: BURKITT'S LYMPHOMA
     Dosage: THERAPY DATE- 7JAN-13JAN07,14JAN-19JAN07,1FEB-7FEB07,JUN07-25JUN07(55MG/D)
     Route: 048
     Dates: start: 20070107, end: 20070625
  10. PREDNISOLONE [Suspect]
     Indication: ACUTE LYMPHOCYTIC LEUKAEMIA
     Dosage: THERAPY DATE- 7JAN-13JAN07,14JAN-19JAN07,1FEB-7FEB07,JUN07-25JUN07(55MG/D)
     Route: 048
     Dates: start: 20070107, end: 20070625
  11. MABTHERA [Suspect]
     Indication: BURKITT'S LYMPHOMA
     Dosage: THERAPY DATE- 14JAN07-19JAN07,01FEB-7FEB07(611MG/D)
     Route: 042
     Dates: start: 20070114, end: 20070207
  12. MABTHERA [Suspect]
     Indication: ACUTE LYMPHOCYTIC LEUKAEMIA
     Dosage: THERAPY DATE- 14JAN07-19JAN07,01FEB-7FEB07(611MG/D)
     Route: 042
     Dates: start: 20070114, end: 20070207
  13. CYTARABINE [Suspect]
     Indication: BURKITT'S LYMPHOMA
     Dosage: THERAPY FRM 01MAR-3MAR07,20MAR-23MAR07(ROUTE-IV)3239MG/D,23JUL-27JUL07(ROUTE-SUBCUTANEOUS)152MG/D,
     Dates: start: 20070301, end: 20070727
  14. CYTARABINE [Suspect]
     Indication: ACUTE LYMPHOCYTIC LEUKAEMIA
     Dosage: THERAPY FRM 01MAR-3MAR07,20MAR-23MAR07(ROUTE-IV)3239MG/D,23JUL-27JUL07(ROUTE-SUBCUTANEOUS)152MG/D,
     Dates: start: 20070301, end: 20070727
  15. VEPESID [Suspect]
     Indication: BURKITT'S LYMPHOMA
     Dosage: THERAPY DATE- 01MAR07-3MAR07,19MAR-23MAR07,23JUL-25JUL07
     Route: 042
     Dates: start: 20070301, end: 20070725
  16. VEPESID [Suspect]
     Indication: ACUTE LYMPHOCYTIC LEUKAEMIA
     Dosage: THERAPY DATE- 01MAR07-3MAR07,19MAR-23MAR07,23JUL-25JUL07
     Route: 042
     Dates: start: 20070301, end: 20070725

REACTIONS (6)
  - ACUTE MYELOID LEUKAEMIA [None]
  - ACUTE RESPIRATORY DISTRESS SYNDROME [None]
  - FEBRILE BONE MARROW APLASIA [None]
  - LEFT VENTRICULAR FAILURE [None]
  - SEPSIS [None]
  - STOMATITIS [None]
